FAERS Safety Report 16078168 (Version 1)
Quarter: 2019Q1

REPORT INFORMATION
  Report Type: Spontaneous
  Country: GB (occurrence: GB)
  Receive Date: 20190315
  Receipt Date: 20190315
  Transmission Date: 20190418
  Serious: Yes (Other)
  Sender: FDA-Public Use
  Company Number: GB-009507513-1903GBR002420

PATIENT
  Age: 29 Year
  Sex: Female
  Weight: 108.4 kg

DRUGS (5)
  1. LOTRIDERM [Suspect]
     Active Substance: BETAMETHASONE DIPROPIONATE\CLOTRIMAZOLE
     Indication: PROCTITIS
     Dosage: MORNING AND NIGHT
     Route: 061
     Dates: start: 20190214
  2. AMOXICILLIN. [Concomitant]
     Active Substance: AMOXICILLIN
  3. PENICILLIN V POTASSIUM. [Concomitant]
     Active Substance: PENICILLIN V POTASSIUM
     Dosage: UNK
  4. CERAZETTE [Concomitant]
  5. FLOXACILLIN [Concomitant]
     Active Substance: FLUCLOXACILLIN
     Dosage: UNK

REACTIONS (2)
  - Dizziness [Not Recovered/Not Resolved]
  - Asthenia [Not Recovered/Not Resolved]

NARRATIVE: CASE EVENT DATE: 20190214
